FAERS Safety Report 10020663 (Version 1)
Quarter: 2013Q4

REPORT INFORMATION
  Report Type: Spontaneous
  Country: US (occurrence: None)
  Receive Date: 20131125
  Receipt Date: 20131125
  Transmission Date: 20140711
  Serious: Yes (Hospitalization, Other)
  Sender: FDA-Public Use
  Company Number: 2013P1000593

PATIENT
  Age: 80 Year
  Sex: Female
  Weight: 180 kg

DRUGS (3)
  1. DIGOXIN [Suspect]
     Indication: ATRIAL FIBRILLATION
     Route: 048
     Dates: start: 20110305, end: 20121004
  2. PLACEBO [Suspect]
     Indication: CORONARY ARTERY DISEASE
     Route: 048
     Dates: start: 20090929
  3. DILTIAZEM HYDROCHLORIDE [Suspect]
     Indication: ATRIAL FIBRILLATION
     Route: 048
     Dates: start: 20121003, end: 20121004

REACTIONS (5)
  - Asthenia [None]
  - Fatigue [None]
  - Atrial fibrillation [None]
  - Sick sinus syndrome [None]
  - Bradycardia [None]
